FAERS Safety Report 19592872 (Version 1)
Quarter: 2021Q3

REPORT INFORMATION
  Report Type: Spontaneous
  Country: US (occurrence: US)
  Receive Date: 20210722
  Receipt Date: 20210722
  Transmission Date: 20211014
  Serious: Yes (Other)
  Sender: FDA-Public Use
  Company Number: None

PATIENT
  Age: 52 Year
  Sex: Female
  Weight: 97 kg

DRUGS (1)
  1. CASIRIVIMAB/IMDEVIMAB [Suspect]
     Active Substance: CASIRIVIMAB\IMDEVIMAB
     Indication: COVID-19
     Dosage: ?          OTHER FREQUENCY:ONE TIME;?
     Route: 042
     Dates: start: 20210720, end: 20210720

REACTIONS (5)
  - Infusion related reaction [None]
  - Ventricular extrasystoles [None]
  - Nausea [None]
  - Ventricular tachycardia [None]
  - Chest discomfort [None]

NARRATIVE: CASE EVENT DATE: 20210720
